FAERS Safety Report 4766355-3 (Version None)
Quarter: 2005Q3

REPORT INFORMATION
  Report Type: 
  Country: None (occurrence: None)
  Receive Date: 20050909
  Receipt Date: 20050827
  Transmission Date: 20060218
  Serious: Yes (Hospitalization)
  Sender: FDA-Public Use
  Company Number: E044-316-3148

PATIENT
  Age: 76 Year
  Sex: Male
  Weight: 70 kg

DRUGS (10)
  1. DONEPEZIL HCL [Suspect]
     Indication: DEMENTIA
     Dosage: SEE IMAGE
     Route: 048
     Dates: start: 20030321, end: 20030417
  2. DONEPEZIL HCL [Suspect]
     Indication: DEMENTIA
     Dosage: SEE IMAGE
     Route: 048
     Dates: start: 20030418, end: 20031010
  3. DONEPEZIL HCL [Suspect]
     Indication: DEMENTIA
     Dosage: SEE IMAGE
     Route: 048
     Dates: start: 20031105, end: 20031106
  4. DONEPEZIL HCL [Suspect]
     Indication: DEMENTIA
     Dosage: SEE IMAGE
     Route: 048
     Dates: start: 20031107
  5. ASPIRIN [Concomitant]
  6. IRBESARTAN [Concomitant]
  7. CLOPIDOGREL BISULFATE [Concomitant]
  8. ATORVASTATIN CALCIUM [Concomitant]
  9. DEXTROPROPOXYPHENE HYDROCHLORIDE/PARACETAMOL (DI-GESIC) [Concomitant]
  10. SINEMET [Concomitant]

REACTIONS (4)
  - AGITATION [None]
  - CONFUSIONAL STATE [None]
  - HALLUCINATION, VISUAL [None]
  - PSYCHOTIC DISORDER [None]
